FAERS Safety Report 7437028-3 (Version None)
Quarter: 2011Q2

REPORT INFORMATION
  Report Type: 
  Country: None (occurrence: None)
  Receive Date: 20110426
  Receipt Date: 20110330
  Transmission Date: 20111010
  Serious: No
  Sender: FDA-Public Use
  Company Number: US-B.I. PHARMACEUTICALS,INC./RIDGEFIELD-2011-BP-09663BP

PATIENT
  Age: 59 Year
  Sex: Female

DRUGS (8)
  1. PAROXETINE HCL [Concomitant]
     Indication: PANIC ATTACK
     Dosage: 40 MG
     Route: 048
     Dates: start: 20101201
  2. ROPINIROLE [Concomitant]
     Indication: RESTLESS LEGS SYNDROME
     Dosage: 0.5 MG
     Route: 048
     Dates: start: 20101001
  3. HYDROXYZINE HCL [Concomitant]
     Indication: PRURITUS
     Dosage: 75 MG
     Route: 048
     Dates: start: 20101001
  4. VERAPAMIL [Concomitant]
     Indication: MIGRAINE
  5. HYDROXYZINE HCL [Concomitant]
     Indication: SLEEP DISORDER
  6. VERAPAMIL [Concomitant]
     Indication: HYPERTENSION
     Dosage: 240 MG
     Route: 048
     Dates: start: 20101001
  7. DULERA TABLET [Concomitant]
     Indication: DYSPNOEA
     Route: 055
  8. SPIRIVA [Suspect]
     Indication: CHRONIC OBSTRUCTIVE PULMONARY DISEASE
     Dosage: 18 MCG
     Route: 055

REACTIONS (1)
  - DRUG INEFFECTIVE [None]
